FAERS Safety Report 7930562-9 (Version None)
Quarter: 2011Q4

REPORT INFORMATION
  Report Type: 
  Country: None (occurrence: None)
  Receive Date: 20111121
  Receipt Date: 20111107
  Transmission Date: 20120403
  Serious: Yes (Hospitalization)
  Sender: FDA-Public Use
  Company Number: US-ROCHE-1013498

PATIENT

DRUGS (5)
  1. HERCEPTIN [Suspect]
     Dosage: FREQ: 2 MG/M2 IV OVER 30 MIN QW ON DAY 1, FOR 52 WEEKS STARTING ON WEEK 13
     Route: 042
  2. PACLITAXEL [Suspect]
     Indication: BREAST CANCER
     Dosage: FREQ: 80 MG/M2 IV OVER 1 HR QW ON DAY 1, FOR 12 WEEKS STARTING ON WEEK 13
     Route: 042
     Dates: start: 20030212
  3. HERCEPTIN [Suspect]
     Indication: BREAST CANCER
     Dosage: FREQ: 4 MG/KG IV OVER 90 MIN AS THE FIRST DOSE.
     Route: 042
     Dates: start: 20030212
  4. DOXORUBICIN HCL [Suspect]
     Indication: BREAST CANCER
     Dosage: FREQ: 60 MG/M2 IVP ON DAY 1, Q21D FOR 4 CYCLES
     Route: 042
     Dates: start: 20030212
  5. CYCLOPHOSPHAMIDE [Suspect]
     Indication: BREAST CANCER
     Dosage: FREQ: 600 MG/M2 IV OVER 30 MIN ON DAY 1, Q21D FOR 4 CYCLES
     Route: 042
     Dates: start: 20030212

REACTIONS (1)
  - EMBOLISM [None]
